FAERS Safety Report 9642095 (Version 1)
Quarter: 2013Q4

REPORT INFORMATION
  Report Type: Report from Study
  Country: US (occurrence: US)
  Receive Date: 20131023
  Receipt Date: 20131023
  Transmission Date: 20140711
  Serious: Yes (Other)
  Sender: FDA-Public Use
  Company Number: US-ROCHE-1292480

PATIENT
  Sex: Female

DRUGS (4)
  1. BEVACIZUMAB [Suspect]
     Indication: ENDOMETRIAL CANCER
     Dosage: 5 MG/KG X 3
     Route: 065
  2. CISPLATIN [Suspect]
     Indication: ENDOMETRIAL CANCER
     Dosage: 50 MG/M2 X 2
     Route: 065
  3. CARBOPLATIN [Suspect]
     Indication: ENDOMETRIAL CANCER
     Dosage: AUC 5
     Route: 065
  4. PACLITAXEL [Suspect]
     Indication: ENDOMETRIAL CANCER
     Dosage: 135 MG/M2 EVERY 21 DAYS X 4
     Route: 065

REACTIONS (2)
  - Hypomagnesaemia [Unknown]
  - Hypokalaemia [Unknown]
